FAERS Safety Report 23014283 (Version 1)
Quarter: 2023Q4

REPORT INFORMATION
  Report Type: Report from Study
  Country: RO (occurrence: RO)
  Receive Date: 20231002
  Receipt Date: 20231002
  Transmission Date: 20240109
  Serious: Yes (Hospitalization, Other)
  Sender: FDA-Public Use
  Company Number: RO-ABBVIE-5429214

PATIENT
  Age: 74 Year
  Sex: Male

DRUGS (2)
  1. CARBIDOPA\LEVODOPA [Suspect]
     Active Substance: CARBIDOPA\LEVODOPA
     Indication: Parkinson^s disease
     Dosage: DM=8.00 DC=3.20 ED=1.20 NRED=0; DMN=0.00 DCN=0.00 EDN=0.00 NREDN=0
     Route: 050
     Dates: start: 20190725
  2. CARBIDOPA\LEVODOPA [Suspect]
     Active Substance: CARBIDOPA\LEVODOPA

REACTIONS (9)
  - Bursitis [Recovering/Resolving]
  - Full blood count abnormal [Unknown]
  - Splenomegaly [Recovering/Resolving]
  - Benign prostatic hyperplasia [Recovering/Resolving]
  - Haemolytic anaemia [Recovering/Resolving]
  - Chronic lymphocytic leukaemia [Recovering/Resolving]
  - Hepatitis B [Recovering/Resolving]
  - Liver disorder [Recovering/Resolving]
  - Device occlusion [Unknown]

NARRATIVE: CASE EVENT DATE: 20230927
